FAERS Safety Report 12675055 (Version 1)
Quarter: 2016Q3

REPORT INFORMATION
  Report Type: Other
  Country: US (occurrence: US)
  Receive Date: 20160822
  Receipt Date: 20160822
  Transmission Date: 20161109
  Serious: No
  Sender: FDA-Public Use
  Company Number: US-PSKUSFDA-2015-US-0214

PATIENT
  Sex: Female

DRUGS (1)
  1. SANCUSO [Suspect]
     Active Substance: GRANISETRON
     Indication: PROPHYLAXIS OF NAUSEA AND VOMITING
     Dosage: UNKNOWN

REACTIONS (6)
  - Feeling jittery [Unknown]
  - Incorrect drug administration duration [Unknown]
  - Drug interaction [Unknown]
  - Thinking abnormal [Unknown]
  - Gastric disorder [Unknown]
  - Drug administration error [Unknown]
